FAERS Safety Report 12484898 (Version 1)
Quarter: 2016Q2

REPORT INFORMATION
  Report Type: Spontaneous
  Country: US (occurrence: None)
  Receive Date: 20160620
  Receipt Date: 20160620
  Transmission Date: 20160815
  Serious: No
  Sender: FDA-Public Use
  Company Number: None

PATIENT
  Age: 36 Year
  Sex: Female
  Weight: 70.31 kg

DRUGS (2)
  1. ZECUITY [Suspect]
     Active Substance: SUMATRIPTAN SUCCINATE
     Indication: MIGRAINE
     Dosage: 1 PATCH STAY ON 4 HOURS PRN APPLIED AS MEDICATED PATCH TO SKIN
     Dates: start: 20160616, end: 20160616
  2. TROKENDI [Concomitant]
     Active Substance: TOPIRAMATE

REACTIONS (6)
  - Paraesthesia [None]
  - Application site swelling [None]
  - Application site pain [None]
  - Application site erythema [None]
  - Chemical injury [None]
  - Pain [None]

NARRATIVE: CASE EVENT DATE: 20160616
